FAERS Safety Report 7124962-7 (Version None)
Quarter: 2010Q4

REPORT INFORMATION
  Report Type: 
  Country: None (occurrence: None)
  Receive Date: 20101115
  Receipt Date: 20101101
  Transmission Date: 20110411
  Serious: Yes (Life-Threatening, Hospitalization, Disabling)
  Sender: FDA-Public Use
  Company Number: 1-20393788

PATIENT
  Age: 13 Year
  Sex: Female

DRUGS (5)
  1. BACTRIM [Suspect]
     Indication: STAPHYLOCOCCAL INFECTION
     Dosage: ORAL
     Route: 048
     Dates: start: 20080622, end: 20080628
  2. CLINDAMYCIN [Suspect]
     Indication: STAPHYLOCOCCAL INFECTION
     Dosage: 300 MG, 3 TIMES DAILY, ORAL
     Route: 048
     Dates: start: 20080624, end: 20080628
  3. ACETAMINOPHEN AND HYDROCODONE BITARTRATE [Concomitant]
  4. ALLEGRA [Concomitant]
  5. UNSPECIFIED ALLERGY SHOTS [Concomitant]

REACTIONS (71)
  - ACNE [None]
  - ALANINE AMINOTRANSFERASE INCREASED [None]
  - ALOPECIA [None]
  - ANAEMIA [None]
  - ASPARTATE AMINOTRANSFERASE INCREASED [None]
  - BILIRUBIN CONJUGATED INCREASED [None]
  - BLEPHARITIS [None]
  - BLOOD BILIRUBIN INCREASED [None]
  - BLOOD PRESSURE INCREASED [None]
  - BODY TEMPERATURE DECREASED [None]
  - CAPILLARY NAIL REFILL TEST ABNORMAL [None]
  - COAGULOPATHY [None]
  - COMA [None]
  - CYSTITIS [None]
  - DECREASED APPETITE [None]
  - DEHYDRATION [None]
  - DEPRESSION [None]
  - DRUG WITHDRAWAL SYNDROME [None]
  - DRY EYE [None]
  - DYSPHONIA [None]
  - EMOTIONAL DISORDER [None]
  - EOSINOPHIL PERCENTAGE INCREASED [None]
  - ESCHERICHIA URINARY TRACT INFECTION [None]
  - FATIGUE [None]
  - FLASHBACK [None]
  - FLUID INTAKE REDUCED [None]
  - FLUID OVERLOAD [None]
  - GASTROINTESTINAL HAEMORRHAGE [None]
  - GASTROINTESTINAL MUCOSAL EXFOLIATION [None]
  - GENERAL PHYSICAL HEALTH DETERIORATION [None]
  - GENITAL LABIAL ADHESIONS [None]
  - HEPATIC FUNCTION ABNORMAL [None]
  - HYPERTHERMIA [None]
  - HYPOHIDROSIS [None]
  - HYPOPHAGIA [None]
  - INCREASED TENDENCY TO BRUISE [None]
  - LUNG DISORDER [None]
  - LUNG INFILTRATION [None]
  - LYMPHOCYTE PERCENTAGE DECREASED [None]
  - MALAISE [None]
  - MELANOCYTIC NAEVUS [None]
  - MENTAL DISORDER [None]
  - MULTI-ORGAN FAILURE [None]
  - NAUSEA [None]
  - NERVE INJURY [None]
  - NEUTROPENIA [None]
  - NIGHTMARE [None]
  - OROPHARYNGEAL DISCOMFORT [None]
  - PAIN [None]
  - PNEUMONIA [None]
  - PULMONARY OEDEMA [None]
  - PYREXIA [None]
  - RENAL IMPAIRMENT [None]
  - SCAR [None]
  - SEPTIC SHOCK [None]
  - SINUS TACHYCARDIA [None]
  - SKIN HYPERPIGMENTATION [None]
  - SKIN STRIAE [None]
  - SOCIAL AVOIDANT BEHAVIOUR [None]
  - STAPHYLOCOCCUS TEST POSITIVE [None]
  - STEVENS-JOHNSON SYNDROME [None]
  - TEMPERATURE INTOLERANCE [None]
  - THERMAL BURN [None]
  - THERMAL BURNS OF EYE [None]
  - THROAT TIGHTNESS [None]
  - THROMBOCYTOPENIA [None]
  - TOXIC EPIDERMAL NECROLYSIS [None]
  - VIRAL INFECTION [None]
  - VISUAL IMPAIRMENT [None]
  - VOCAL CORD DISORDER [None]
  - WEIGHT DECREASED [None]
